FAERS Safety Report 21032204 (Version 4)
Quarter: 2022Q4

REPORT INFORMATION
  Report Type: Report from Study
  Country: NO (occurrence: None)
  Receive Date: 20220701
  Receipt Date: 20221031
  Transmission Date: 20230113
  Serious: Yes (Hospitalization)
  Sender: FDA-Public Use
  Company Number: NO-ROCHE-3125308

PATIENT
  Age: 56 Year
  Sex: Female

DRUGS (7)
  1. ATEZOLIZUMAB [Suspect]
     Active Substance: ATEZOLIZUMAB
     Indication: Neoplasm malignant
     Dosage: ON 07/JUN/2022, ONE CYCLE OF MEDICATION
     Route: 065
     Dates: start: 20220607
  2. PANTOPRAZOLE SODIUM [Concomitant]
     Active Substance: PANTOPRAZOLE SODIUM
     Route: 048
     Dates: start: 20220325
  3. PARAFFIN [Concomitant]
     Active Substance: PARAFFIN
     Route: 048
     Dates: start: 20210805
  4. NALOXEGOL OXALATE [Concomitant]
     Active Substance: NALOXEGOL OXALATE
     Route: 048
     Dates: start: 20220520
  5. ZOMETA [Concomitant]
     Active Substance: ZOLEDRONIC ACID
     Route: 042
     Dates: start: 20220325
  6. PARACET (NORWAY) [Concomitant]
     Dates: start: 2021
  7. METHYLPREDNISOLONE [Concomitant]
     Active Substance: METHYLPREDNISOLONE
     Indication: Blood alkaline phosphatase increased
     Dates: start: 20220815

REACTIONS (3)
  - Pain [Recovered/Resolved]
  - Autoimmune hepatitis [Not Recovered/Not Resolved]
  - Urinary tract infection [Recovered/Resolved]

NARRATIVE: CASE EVENT DATE: 20220614
